FAERS Safety Report 9490469 (Version 1)
Quarter: 2013Q3

REPORT INFORMATION
  Report Type: Spontaneous
  Country: GB (occurrence: None)
  Receive Date: 20130823
  Receipt Date: 20130823
  Transmission Date: 20140515
  Serious: Yes (Hospitalization)
  Sender: FDA-Public Use
  Company Number: GER/UKI/13/0034145

PATIENT
  Age: 57 Year
  Sex: Male
  Weight: 71.4 kg

DRUGS (3)
  1. AMLODIPINE [Suspect]
     Indication: HYPERTENSION
  2. DOXAZOSIN [Suspect]
     Indication: HYPERTENSION
     Dates: start: 201207
  3. LISINOPRIL [Suspect]
     Indication: HYPERTENSION

REACTIONS (7)
  - Decreased appetite [None]
  - Diarrhoea [None]
  - Heart rate irregular [None]
  - Paraesthesia [None]
  - Vomiting [None]
  - Heart rate decreased [None]
  - Rash [None]
